FAERS Safety Report 8660973 (Version 2)
Quarter: 2014Q1

REPORT INFORMATION
  Report Type: Spontaneous
  Country: US (occurrence: None)
  Receive Date: 20120402
  Receipt Date: 20131226
  Transmission Date: 20141002
  Serious: Yes (Other)
  Sender: FDA-Public Use
  Company Number: PHHY2011US48248

PATIENT
  Sex: 0

DRUGS (1)
  1. EXFORGE [Suspect]
     Dosage: 1 DF

REACTIONS (4)
  - Blood pressure fluctuation [None]
  - Joint swelling [None]
  - Oedema peripheral [None]
  - Pain [None]
